FAERS Safety Report 5381342-2 (Version None)
Quarter: 2007Q2

REPORT INFORMATION
  Report Type: 
  Country: None (occurrence: None)
  Receive Date: 20070629
  Receipt Date: 20061108
  Transmission Date: 20071010
  Serious: Yes (Other)
  Sender: FDA-Public Use
  Company Number: 2006136654

PATIENT
  Age: 35 Year
  Sex: Male

DRUGS (2)
  1. ZOLOFT [Suspect]
     Indication: DEPRESSION
     Dosage: 100 MG (1 D), ORAL
     Route: 048
     Dates: start: 20061001
  2. ULTRAM [Suspect]
     Indication: BACK PAIN
     Dosage: ORAL
     Route: 048
     Dates: end: 20061001

REACTIONS (1)
  - CONVULSION [None]
